FAERS Safety Report 4674047-4 (Version None)
Quarter: 2005Q2

REPORT INFORMATION
  Report Type: 
  Country: None (occurrence: None)
  Receive Date: 20050525
  Receipt Date: 20050509
  Transmission Date: 20051028
  Serious: Yes (Other)
  Sender: FDA-Public Use
  Company Number: S05-SWE-01740-01

PATIENT
  Age: 24 Year
  Sex: Male

DRUGS (5)
  1. CIPRALEX (ESCITALOPRAM) [Suspect]
     Dosage: 20 MG QD PO
     Route: 048
  2. VALPROIC ACID [Suspect]
     Indication: BIPOLAR DISORDER
     Dosage: 500 MG BID PO
     Route: 048
     Dates: start: 20040901
  3. MIRTAZAPINE [Suspect]
     Dosage: 30 MG QD PO
     Route: 048
  4. OLANZAPINE [Concomitant]
  5. EFFEXOR [Concomitant]

REACTIONS (5)
  - ABDOMINAL PAIN UPPER [None]
  - ALANINE AMINOTRANSFERASE INCREASED [None]
  - ASPARTATE AMINOTRANSFERASE INCREASED [None]
  - HEPATOCELLULAR DAMAGE [None]
  - NERVOUSNESS [None]
